FAERS Safety Report 10376233 (Version 1)
Quarter: 2014Q3

REPORT INFORMATION
  Report Type: Spontaneous
  Country: US (occurrence: US)
  Receive Date: 20140811
  Receipt Date: 20140811
  Transmission Date: 20150326
  Serious: No
  Sender: FDA-Public Use
  Company Number: US-ASTRAZENECA-2013SE62142

PATIENT
  Age: 65 Year
  Sex: Female
  Weight: 93 kg

DRUGS (8)
  1. ARIMIDEX [Suspect]
     Active Substance: ANASTROZOLE
     Indication: BREAST CANCER
     Route: 048
     Dates: start: 2010
  2. PROTONIX [Concomitant]
     Active Substance: PANTOPRAZOLE SODIUM
     Indication: GASTROOESOPHAGEAL REFLUX DISEASE
  3. HYDROCHLOROTHIAZIDE. [Concomitant]
     Active Substance: HYDROCHLOROTHIAZIDE
     Indication: BLOOD PRESSURE ABNORMAL
  4. METFORMIN [Concomitant]
     Active Substance: METFORMIN HYDROCHLORIDE
     Indication: TYPE 2 DIABETES MELLITUS
  5. ATIVAN [Concomitant]
     Active Substance: LORAZEPAM
     Indication: SLEEP DISORDER
  6. IMIPRAMINE [Concomitant]
     Active Substance: IMIPRAMINE
     Indication: BLADDER DISORDER
  7. VITAMIN D [Concomitant]
     Active Substance: CHOLECALCIFEROL
     Indication: VITAMIN D DECREASED
  8. DITROPAN [Concomitant]
     Active Substance: OXYBUTYNIN CHLORIDE

REACTIONS (10)
  - Gait disturbance [Recovering/Resolving]
  - Adverse event [Unknown]
  - Type 2 diabetes mellitus [Unknown]
  - Vitamin D decreased [Unknown]
  - Gait disturbance [Unknown]
  - Peripheral swelling [Unknown]
  - Hypoaesthesia [Unknown]
  - Hypoaesthesia [Unknown]
  - Rheumatoid factor increased [Unknown]
  - Peripheral sensory neuropathy [Unknown]

NARRATIVE: CASE EVENT DATE: 2010
